FAERS Safety Report 6580780-X (Version None)
Quarter: 2010Q1

REPORT INFORMATION
  Report Type: 
  Country: None (occurrence: None)
  Receive Date: 20100213
  Receipt Date: 20100201
  Transmission Date: 20100710
  Serious: Yes (Other)
  Sender: FDA-Public Use
  Company Number: GB-ELI_LILLY_AND_COMPANY-GB201002000769

PATIENT
  Sex: Male

DRUGS (1)
  1. BYETTA [Suspect]
     Dosage: 10 UG, UNKNOWN

REACTIONS (1)
  - RENAL FAILURE [None]
